FAERS Safety Report 16598113 (Version 1)
Quarter: 2019Q3

REPORT INFORMATION
  Report Type: Spontaneous
  Country: CN (occurrence: CN)
  Receive Date: 20190719
  Receipt Date: 20190719
  Transmission Date: 20191004
  Serious: Yes (Other)
  Sender: FDA-Public Use
  Company Number: CN-PFIZER INC-2019303393

PATIENT
  Age: 32 Year
  Sex: Female
  Weight: 81 kg

DRUGS (4)
  1. OXYTOCIN. [Concomitant]
     Active Substance: OXYTOCIN
     Dosage: 20 UNITS (AS REPORTED) QD IVGTT
     Route: 041
     Dates: start: 20190707, end: 20190710
  2. SODIUM CHLORIDE. [Concomitant]
     Active Substance: SODIUM CHLORIDE
     Indication: VEHICLE SOLUTION USE
     Dosage: 500 ML, 1X/DAY
     Route: 041
     Dates: start: 20190707, end: 20190710
  3. OXYTOCIN. [Concomitant]
     Active Substance: OXYTOCIN
     Indication: UTERINE HYPOTONUS
     Dosage: 10 UNITS (AS REPORTED) ST IVGTT
     Route: 041
     Dates: start: 20190707, end: 20190707
  4. CYTOTEC [Suspect]
     Active Substance: MISOPROSTOL
     Indication: IMMINENT ABORTION
     Dosage: 0.6 MG, 1X/DAY
     Route: 002
     Dates: start: 20190707, end: 20190707

REACTIONS (5)
  - Tremor [Recovered/Resolved]
  - Off label use [Unknown]
  - Chills [Recovered/Resolved]
  - Diarrhoea [Recovered/Resolved]
  - Product use in unapproved indication [Unknown]

NARRATIVE: CASE EVENT DATE: 20190707
